FAERS Safety Report 5824453-7 (Version None)
Quarter: 2008Q3

REPORT INFORMATION
  Report Type: 
  Country: None (occurrence: None)
  Receive Date: 20080728
  Receipt Date: 20080717
  Transmission Date: 20090109
  Serious: Yes (Other)
  Sender: FDA-Public Use
  Company Number: B0529640A

PATIENT
  Age: 44 Year
  Sex: Male

DRUGS (5)
  1. ZOPHREN [Suspect]
     Dosage: 8MG TWICE PER DAY
     Route: 048
     Dates: start: 20080530, end: 20080601
  2. GEMZAR [Suspect]
     Route: 042
     Dates: start: 20080530, end: 20080605
  3. VOGALENE [Concomitant]
     Route: 065
     Dates: start: 20080522
  4. METEOSPASMYL [Concomitant]
     Route: 065
  5. NEXIUM [Concomitant]
     Route: 065

REACTIONS (3)
  - ORAL CANDIDIASIS [None]
  - PRURIGO [None]
  - RASH [None]
